FAERS Safety Report 21405323 (Version 1)
Quarter: 2022Q4

REPORT INFORMATION
  Report Type: Spontaneous
  Country: CN (occurrence: CN)
  Receive Date: 20221004
  Receipt Date: 20221004
  Transmission Date: 20230112
  Serious: Yes (Death, Other)
  Sender: FDA-Public Use
  Company Number: CN-SUN PHARMACEUTICAL INDUSTRIES LTD-2022R1-357341

PATIENT
  Age: 56 Year
  Sex: Male

DRUGS (2)
  1. GEMCITABINE [Suspect]
     Active Substance: GEMCITABINE
     Indication: Non-small cell lung cancer stage IV
     Dosage: EVEY 21 DAYS AS A CYCLE
     Route: 042
     Dates: start: 202006, end: 202010
  2. TISLELIZUMAB [Suspect]
     Active Substance: TISLELIZUMAB
     Indication: Non-small cell lung cancer stage IV
     Dosage: EVERY 21 DAY AS A CYCLE
     Route: 042
     Dates: start: 202006, end: 202010

REACTIONS (1)
  - Neoplasm progression [Fatal]
